FAERS Safety Report 12889974 (Version 2)
Quarter: 2016Q4

REPORT INFORMATION
  Report Type: Spontaneous
  Country: ES (occurrence: ES)
  Receive Date: 20161027
  Receipt Date: 20161129
  Transmission Date: 20170207
  Serious: Yes (Other)
  Sender: FDA-Public Use
  Company Number: ES-AMGEN-ESPSP2016147741

PATIENT
  Age: 60 Year
  Sex: Female

DRUGS (3)
  1. HIDROFEROL [Concomitant]
     Active Substance: CALCIFEDIOL
     Indication: OSTEOPOROSIS
     Dosage: 20 UNK, UNK
     Dates: start: 20130828
  2. PROLIA [Suspect]
     Active Substance: DENOSUMAB
     Indication: OSTEOPOROSIS POSTMENOPAUSAL
     Dosage: 60 MG, Q6MO
     Route: 058
     Dates: start: 20130828
  3. HYDROCHLOROTHIAZIDE. [Concomitant]
     Active Substance: HYDROCHLOROTHIAZIDE
     Indication: HYPERCALCIURIA
     Dosage: 25 MG, UNK
     Dates: start: 20130828

REACTIONS (2)
  - Iridocyclitis [Unknown]
  - Episcleritis [Recovered/Resolved]

NARRATIVE: CASE EVENT DATE: 20160612
